FAERS Safety Report 15351826 (Version 2)
Quarter: 2018Q4

REPORT INFORMATION
  Report Type: Spontaneous
  Country: US (occurrence: US)
  Receive Date: 20180905
  Receipt Date: 20181024
  Transmission Date: 20190204
  Serious: Yes (Hospitalization, Other)
  Sender: FDA-Public Use
  Company Number: US-BAYER-2018-162446

PATIENT
  Age: 39 Year
  Sex: Female
  Weight: 111 kg

DRUGS (2)
  1. MIRENA [Suspect]
     Active Substance: LEVONORGESTREL
     Indication: CONTRACEPTION
  2. MIRENA [Suspect]
     Active Substance: LEVONORGESTREL
     Indication: MENORRHAGIA
     Dosage: 20 MCG/24HR, CONT
     Route: 015
     Dates: start: 2014, end: 201808

REACTIONS (5)
  - Abdominal pain [None]
  - Drug ineffective [None]
  - Pregnancy with contraceptive device [None]
  - Haemorrhage in pregnancy [None]
  - Abortion spontaneous incomplete [None]

NARRATIVE: CASE EVENT DATE: 2018
